FAERS Safety Report 7436250-X (Version None)
Quarter: 2011Q2

REPORT INFORMATION
  Report Type: 
  Country: None (occurrence: None)
  Receive Date: 20110425
  Receipt Date: 20110418
  Transmission Date: 20111010
  Serious: Yes (Hospitalization)
  Sender: FDA-Public Use
  Company Number: IT-BRISTOL-MYERS SQUIBB COMPANY-15692189

PATIENT
  Age: 69 Year
  Sex: Male
  Weight: 77 kg

DRUGS (6)
  1. CISPLATIN [Suspect]
     Indication: HEAD AND NECK CANCER
     Dosage: LAST INF ON 01APR11.ONG-UNK.
     Route: 042
     Dates: start: 20110128
  2. PEMETREXED DISODIUM [Suspect]
     Indication: HEAD AND NECK CANCER
     Dosage: LAST INF ON 01APR11.ONG-UNK
     Route: 042
     Dates: start: 20110128
  3. VITAMIN B-12 [Concomitant]
     Indication: PROPHYLAXIS
  4. CETUXIMAB [Suspect]
     Indication: HEAD AND NECK CANCER
     Dosage: 400MG/M2,LOADING DOSE ON D 1 OF CYC 1,28-28JAN11(1D).250MG/M2 WK DAY(1/W)ON-UK.LAST INF ON 15APR11.
     Route: 042
     Dates: start: 20110128
  5. FOLIC ACID [Concomitant]
     Indication: PROPHYLAXIS
     Dates: start: 20101228
  6. DEXAMETHASONE [Concomitant]
     Indication: PROPHYLAXIS

REACTIONS (2)
  - ANAEMIA [None]
  - HYPOMAGNESAEMIA [None]
